FAERS Safety Report 10190416 (Version 2)
Quarter: 2014Q3

REPORT INFORMATION
  Report Type: Report from Study
  Country: US (occurrence: US)
  Receive Date: 20140522
  Receipt Date: 20140722
  Transmission Date: 20150326
  Serious: Yes (Death, Other)
  Sender: FDA-Public Use
  Company Number: US-EXELIXIS-XL18414004305

PATIENT
  Age: 61 Year
  Sex: Male
  Weight: 108.84 kg

DRUGS (20)
  1. XL184 [Suspect]
     Active Substance: CABOZANTINIB
     Indication: THYROID CANCER
     Dosage: 60 MG, QD
     Route: 048
     Dates: start: 20140424, end: 20140517
  2. LOVASTATIN. [Concomitant]
     Active Substance: LOVASTATIN
  3. SYNTHROID [Concomitant]
     Active Substance: LEVOTHYROXINE SODIUM
  4. ASPIRIN. [Concomitant]
     Active Substance: ASPIRIN
  5. FINASTERIDE. [Concomitant]
     Active Substance: FINASTERIDE
  6. POLYETHYLENE GLYCOL [Concomitant]
     Active Substance: POLYETHYLENE GLYCOLS
  7. AMLODIPINE BESYLATE. [Concomitant]
     Active Substance: AMLODIPINE BESYLATE
  8. CALCIUM CARBONATE AND VITAMIN D [Concomitant]
  9. DOCUSATE SODIUM. [Concomitant]
     Active Substance: DOCUSATE SODIUM
  10. LISINOPRIL. [Concomitant]
     Active Substance: LISINOPRIL
  11. SILDENAFIL CITRATE. [Concomitant]
     Active Substance: SILDENAFIL CITRATE
  12. CALCITRIOL. [Concomitant]
     Active Substance: CALCITRIOL
  13. SENNOSIDE [Concomitant]
     Active Substance: SENNOSIDES
  14. ALLOPURINOL. [Concomitant]
     Active Substance: ALLOPURINOL
  15. MORPHINE [Concomitant]
     Active Substance: MORPHINE
  16. FIBER [Concomitant]
     Active Substance: PSYLLIUM HUSK
  17. MAGNESIUM [Concomitant]
     Active Substance: MAGNESIUM
  18. OMEPRAZOLE. [Concomitant]
     Active Substance: OMEPRAZOLE
  19. TAMSULOSIN [Concomitant]
     Active Substance: TAMSULOSIN
  20. TOPIRAMATE. [Concomitant]
     Active Substance: TOPIRAMATE

REACTIONS (2)
  - Hypertensive heart disease [Fatal]
  - Deep vein thrombosis [Not Recovered/Not Resolved]

NARRATIVE: CASE EVENT DATE: 20140509
